FAERS Safety Report 8382513-3 (Version None)
Quarter: 2012Q2

REPORT INFORMATION
  Report Type: 
  Country: None (occurrence: None)
  Receive Date: 20120522
  Receipt Date: 20110316
  Transmission Date: 20120825
  Serious: Yes (Other)
  Sender: FDA-Public Use
  Company Number: 2011-01284

PATIENT
  Sex: Female

DRUGS (1)
  1. THERACYS [Suspect]
     Indication: BLADDER CANCER
     Dosage: I. VES., NR
     Route: 043

REACTIONS (3)
  - BLADDER CANCER RECURRENT [None]
  - BLADDER PAIN [None]
  - DYSURIA [None]
